FAERS Safety Report 9235067 (Version 1)
Quarter: 2013Q2

REPORT INFORMATION
  Report Type: Spontaneous
  Country: US (occurrence: US)
  Receive Date: 20130416
  Receipt Date: 20130416
  Transmission Date: 20140414
  Serious: No
  Sender: FDA-Public Use
  Company Number: US-ASTRAZENECA-2013SE21124

PATIENT
  Age: 54 Year
  Sex: Female
  Weight: 74.4 kg

DRUGS (5)
  1. NEXIUM [Suspect]
     Indication: DYSPEPSIA
     Route: 048
     Dates: start: 201303
  2. CHEMOTHERAPY /RUTUX [Concomitant]
     Indication: LEUKAEMIA
  3. CHEMOTHERAPY /RUTUX [Concomitant]
     Indication: LYMPHOMA
  4. STEROIDS [Concomitant]
     Indication: LEUKAEMIA
  5. STEROIDS [Concomitant]
     Indication: LYMPHOMA

REACTIONS (3)
  - Dyspepsia [Unknown]
  - Nasopharyngitis [Unknown]
  - Intentional drug misuse [Unknown]
